FAERS Safety Report 8276344-2 (Version None)
Quarter: 2012Q2

REPORT INFORMATION
  Report Type: 
  Country: None (occurrence: None)
  Receive Date: 20120412
  Receipt Date: 20120409
  Transmission Date: 20120825
  Serious: Yes (Hospitalization, Other)
  Sender: FDA-Public Use
  Company Number: US-JNJFOC-20111109040

PATIENT
  Sex: Female

DRUGS (11)
  1. BETAMETHASONE [Suspect]
     Indication: PRODUCT USED FOR UNKNOWN INDICATION
     Route: 065
  2. TOPAMAX [Suspect]
     Indication: ANXIETY
     Route: 048
     Dates: start: 20010101, end: 20070101
  3. TERBUTALINE [Suspect]
     Indication: PREMATURE LABOUR
     Route: 048
  4. PROMETRIUM [Suspect]
     Indication: PREGNANCY
     Route: 048
  5. TOPAMAX [Suspect]
     Indication: BIPOLAR DISORDER
     Route: 048
     Dates: start: 20010101, end: 20070101
  6. LITHIUM CARBONATE [Suspect]
     Indication: BIPOLAR DISORDER
     Route: 048
  7. CLINDAMYCIN [Suspect]
     Indication: BACTERIAL INFECTION
     Route: 067
  8. AMPICILLIN [Suspect]
     Indication: PRODUCT USED FOR UNKNOWN INDICATION
     Route: 065
  9. LEXAPRO [Suspect]
     Indication: BIPOLAR DISORDER
     Route: 048
  10. NIFEDIPINE [Suspect]
     Indication: PRODUCT USED FOR UNKNOWN INDICATION
     Route: 065
  11. ZITHROMAX [Suspect]
     Indication: PRODUCT USED FOR UNKNOWN INDICATION
     Route: 065

REACTIONS (4)
  - MATERNAL EXPOSURE DURING PREGNANCY [None]
  - CHORIOAMNIONITIS [None]
  - EMOTIONAL DISTRESS [None]
  - PREMATURE DELIVERY [None]
